FAERS Safety Report 9438751 (Version 1)
Quarter: 2013Q3

REPORT INFORMATION
  Report Type: Spontaneous
  Country: GB (occurrence: GB)
  Receive Date: 20130802
  Receipt Date: 20130802
  Transmission Date: 20140515
  Serious: Yes (Other)
  Sender: FDA-Public Use
  Company Number: GB-ACTAVIS-2013-13525

PATIENT
  Age: 56 Year
  Sex: Male

DRUGS (4)
  1. TRAMADOL HYDROCHLORIDE (UNKNOWN) [Suspect]
     Indication: PRODUCT USED FOR UNKNOWN INDICATION
     Dosage: 200 MG, UNKNOWN
     Route: 065
  2. TAPENTADOL HYDROCHLORIDE [Suspect]
     Indication: PAIN
     Dosage: 100 MG, BID
     Route: 048
  3. CO-CODAMOL [Concomitant]
     Indication: PRODUCT USED FOR UNKNOWN INDICATION
     Dosage: UNK, UNKNOWN
     Route: 065
  4. BACLOFEN [Concomitant]
     Indication: PRODUCT USED FOR UNKNOWN INDICATION
     Dosage: UNK, UNKNOWN
     Route: 065

REACTIONS (8)
  - Pain [Unknown]
  - Anxiety [Unknown]
  - Hypertension [Unknown]
  - Urinary retention [Unknown]
  - Headache [Unknown]
  - Malaise [Unknown]
  - Drug ineffective [Unknown]
  - Drug interaction [Unknown]
